FAERS Safety Report 5753606-1 (Version None)
Quarter: 2008Q2

REPORT INFORMATION
  Report Type: 
  Country: None (occurrence: None)
  Receive Date: 20080530
  Receipt Date: 20080522
  Transmission Date: 20081010
  Serious: Yes (Hospitalization)
  Sender: FDA-Public Use
  Company Number: US-JNJFOC-20080502092

PATIENT
  Sex: Male
  Weight: 80.74 kg

DRUGS (11)
  1. DURAGESIC-100 [Suspect]
     Dosage: 2X 100UG/HR PATCHES
     Route: 062
  2. DURAGESIC-100 [Suspect]
     Dosage: 4X 100UG/HR PATCHES
     Route: 062
  3. DURAGESIC-100 [Suspect]
     Route: 062
  4. DURAGESIC-100 [Suspect]
     Indication: PAIN
     Route: 062
  5. FENTANYL TRANSDERMAL SYSTEM [Suspect]
     Indication: PAIN
     Route: 062
  6. FENTANYL TRANSDERMAL SYSTEM [Suspect]
     Dosage: 2X 100UG/HR PATCHES
     Route: 062
  7. FENTANYL TRANSDERMAL SYSTEM [Suspect]
     Dosage: 4 X 100UG/HR PATCHES
     Route: 062
  8. FENTANYL TRANSDERMAL SYSTEM [Suspect]
     Indication: PAIN
     Dosage: 4 X 100UG/HR
     Route: 062
  9. ACTIQ [Concomitant]
     Indication: PAIN
     Route: 065
  10. KLONOPIN [Concomitant]
     Indication: CONVULSION
     Route: 048
  11. PREVACID [Concomitant]
     Indication: GASTRIC DISORDER
     Route: 048

REACTIONS (10)
  - APPLICATION SITE BLEEDING [None]
  - APPLICATION SITE REACTION [None]
  - APPLICATION SITE SCAB [None]
  - FATIGUE [None]
  - HEART RATE DECREASED [None]
  - HYPOTENSION [None]
  - INAPPROPRIATE SCHEDULE OF DRUG ADMINISTRATION [None]
  - SKIN DISORDER [None]
  - SKIN HAEMORRHAGE [None]
  - SOMNOLENCE [None]
